FAERS Safety Report 20990378 (Version 1)
Quarter: 2022Q2

REPORT INFORMATION
  Report Type: Report from Study
  Country: FR (occurrence: FR)
  Receive Date: 20220622
  Receipt Date: 20220622
  Transmission Date: 20220721
  Serious: Yes (Other)
  Sender: FDA-Public Use
  Company Number: FR-SUN PHARMACEUTICAL INDUSTRIES LTD-2022R1-339286

PATIENT
  Age: 75 Year
  Sex: Female
  Weight: 74 kg

DRUGS (1)
  1. ERTAPENEM [Suspect]
     Active Substance: ERTAPENEM
     Indication: Device related infection
     Dosage: UNK (1 G ON MONDAY AND WEDNESDAY AND 2 G ON FRIDAY)
     Route: 058

REACTIONS (2)
  - Treatment failure [Unknown]
  - Drug resistance [Unknown]
